FAERS Safety Report 22246842 (Version 2)
Quarter: 2023Q2

REPORT INFORMATION
  Report Type: Report from Study
  Country: DE (occurrence: DE)
  Receive Date: 20230424
  Receipt Date: 20230511
  Transmission Date: 20230721
  Serious: Yes (Other)
  Sender: FDA-Public Use
  Company Number: DE-SA-SAC20221021001457

PATIENT
  Age: 68 Year
  Sex: Male

DRUGS (69)
  1. DEXAMETHASONE [Suspect]
     Active Substance: DEXAMETHASONE
     Indication: Plasma cell myeloma refractory
     Dosage: 00020 MG, D1, D2, D8, D9, D15, D16, D22
     Route: 065
     Dates: start: 20220815, end: 20220905
  2. DEXAMETHASONE [Suspect]
     Active Substance: DEXAMETHASONE
     Dosage: 00000 MG, D8,D9
     Route: 065
     Dates: start: 20220919, end: 20220925
  3. DEXAMETHASONE [Suspect]
     Active Substance: DEXAMETHASONE
     Dosage: 00020 UNK,D15,D16
     Route: 065
     Dates: start: 20230321, end: 20230322
  4. DEXAMETHASONE [Suspect]
     Active Substance: DEXAMETHASONE
     Dosage: 0000 UNK, D8
     Route: 065
     Dates: start: 20230119, end: 20230130
  5. DEXAMETHASONE [Suspect]
     Active Substance: DEXAMETHASONE
     Dosage: 00020 UNK,D1,D2
     Route: 065
     Dates: start: 20230404, end: 20230405
  6. DEXAMETHASONE [Suspect]
     Active Substance: DEXAMETHASONE
     Dosage: 00020 MG,D1,D2
     Route: 065
     Dates: start: 20221010, end: 20221011
  7. DEXAMETHASONE [Suspect]
     Active Substance: DEXAMETHASONE
     Dosage: 00020 UNK, D8,D9
     Route: 065
     Dates: start: 20230113, end: 20230201
  8. DEXAMETHASONE [Suspect]
     Active Substance: DEXAMETHASONE
     Dosage: 00020 MG,D1,D2
     Route: 065
     Dates: start: 20221121, end: 20221122
  9. DEXAMETHASONE [Suspect]
     Active Substance: DEXAMETHASONE
     Dosage: 00020 UNK, D1,D2
     Route: 065
     Dates: start: 20230228, end: 20230301
  10. DEXAMETHASONE [Suspect]
     Active Substance: DEXAMETHASONE
     Dosage: 0000 MG,D8
     Route: 065
     Dates: start: 20221123, end: 20221204
  11. DEXAMETHASONE [Suspect]
     Active Substance: DEXAMETHASONE
     Dosage: 00020 UNK,D8,D9
     Route: 065
     Dates: start: 20230314, end: 20230315
  12. DEXAMETHASONE [Suspect]
     Active Substance: DEXAMETHASONE
     Dosage: 00020 MG, D1,D2
     Route: 065
     Dates: start: 20220912, end: 20220913
  13. DEXAMETHASONE [Suspect]
     Active Substance: DEXAMETHASONE
     Dosage: 00000 UNK, D8
     Route: 065
     Dates: start: 20230302, end: 20230313
  14. DEXAMETHASONE [Suspect]
     Active Substance: DEXAMETHASONE
     Dosage: 00020 MG,D15,D16
     Route: 065
     Dates: start: 20221107, end: 20221108
  15. DEXAMETHASONE [Suspect]
     Active Substance: DEXAMETHASONE
     Dosage: 00020 UNK,D1, D2
     Route: 065
     Dates: start: 20230117, end: 20230118
  16. DEXAMETHASONE [Suspect]
     Active Substance: DEXAMETHASONE
     Dosage: 000000 MG,D15
     Route: 065
     Dates: start: 20221026, end: 20221106
  17. DEXAMETHASONE [Suspect]
     Active Substance: DEXAMETHASONE
     Dosage: 00000 UNK,D1
     Route: 065
     Dates: start: 20230116, end: 20230116
  18. DEXAMETHASONE [Suspect]
     Active Substance: DEXAMETHASONE
     Dosage: 00020 MG, D15,D16
     Route: 065
     Dates: start: 20220926, end: 20220927
  19. DEXAMETHASONE [Suspect]
     Active Substance: DEXAMETHASONE
     Dosage: 00000 UNK,D15
     Route: 065
     Dates: start: 20221207, end: 20230101
  20. DEXAMETHASONE [Suspect]
     Active Substance: DEXAMETHASONE
     Dosage: 00000 MG,D8
     Route: 065
     Dates: start: 20221012, end: 20221023
  21. ISATUXIMAB [Suspect]
     Active Substance: ISATUXIMAB
     Indication: Plasma cell myeloma refractory
     Dosage: 00000 MG, D15
     Route: 065
     Dates: start: 20221011, end: 20221106
  22. ISATUXIMAB [Suspect]
     Active Substance: ISATUXIMAB
     Dosage: 000000 MG, D15
     Route: 065
     Dates: start: 20230321, end: 20230321
  23. ISATUXIMAB [Suspect]
     Active Substance: ISATUXIMAB
     Dosage: 00000 MG, D15
     Route: 065
     Dates: start: 20221122, end: 20230101
  24. ISATUXIMAB [Suspect]
     Active Substance: ISATUXIMAB
     Dosage: 00760 MG, D15, D16
     Route: 065
     Dates: start: 20230214, end: 20230215
  25. ISATUXIMAB [Suspect]
     Active Substance: ISATUXIMAB
     Dosage: 00760 MG, D1, D2
     Route: 065
     Dates: start: 20230228, end: 20230301
  26. ISATUXIMAB [Suspect]
     Active Substance: ISATUXIMAB
     Dosage: 00760 MG, D1, D8, D15, D22
     Route: 065
     Dates: start: 20220815, end: 20220905
  27. ISATUXIMAB [Suspect]
     Active Substance: ISATUXIMAB
     Dosage: 000000 MG, D15
     Route: 065
     Dates: start: 20230202, end: 20230213
  28. ISATUXIMAB [Suspect]
     Active Substance: ISATUXIMAB
     Dosage: 00760 MG, D1
     Route: 065
     Dates: start: 20221010, end: 20221010
  29. ISATUXIMAB [Suspect]
     Active Substance: ISATUXIMAB
     Dosage: 00760 MG, D15
     Route: 065
     Dates: start: 20230102, end: 20230102
  30. ISATUXIMAB [Suspect]
     Active Substance: ISATUXIMAB
     Dosage: 00760 MG, BIW
     Route: 065
     Dates: start: 20220912, end: 20220926
  31. ISATUXIMAB [Suspect]
     Active Substance: ISATUXIMAB
     Dosage: 00760 MG, D1
     Route: 065
     Dates: start: 20221121, end: 20221121
  32. ISATUXIMAB [Suspect]
     Active Substance: ISATUXIMAB
     Dosage: 00760 UNK, D1, D15
     Route: 065
     Dates: start: 20230117, end: 20230117
  33. ISATUXIMAB [Suspect]
     Active Substance: ISATUXIMAB
     Dosage: 00000 MG, D1, D15
     Route: 065
     Dates: start: 20230116, end: 20230116
  34. ISATUXIMAB [Suspect]
     Active Substance: ISATUXIMAB
     Dosage: 00760 MG, D1, D2
     Route: 065
     Dates: start: 20230404, end: 20230405
  35. CARFILZOMIB [Suspect]
     Active Substance: CARFILZOMIB
     Indication: Plasma cell myeloma refractory
     Dosage: 00111 MG,D1,D2
     Route: 065
     Dates: start: 20221121, end: 20221122
  36. CARFILZOMIB [Suspect]
     Active Substance: CARFILZOMIB
     Dosage: 00000 MG,D15
     Route: 065
     Dates: start: 20221207, end: 20230101
  37. CARFILZOMIB [Suspect]
     Active Substance: CARFILZOMIB
     Dosage: 000000 MG,D8
     Route: 065
     Dates: start: 20230119, end: 20230130
  38. CARFILZOMIB [Suspect]
     Active Substance: CARFILZOMIB
     Dosage: 00111 MG,D15,D16
     Route: 065
     Dates: start: 20220926, end: 20220927
  39. CARFILZOMIB [Suspect]
     Active Substance: CARFILZOMIB
     Dosage: 00111 MG,D15,D16
     Route: 065
     Dates: start: 20230131, end: 20230201
  40. CARFILZOMIB [Suspect]
     Active Substance: CARFILZOMIB
     Dosage: 00000 MG,D8
     Route: 065
     Dates: start: 20221012, end: 20221023
  41. CARFILZOMIB [Suspect]
     Active Substance: CARFILZOMIB
     Dosage: 00111 MG,D1,D2
     Route: 065
     Dates: start: 20230117, end: 20230118
  42. CARFILZOMIB [Suspect]
     Active Substance: CARFILZOMIB
     Dosage: 00111 MG, D1,D2
     Route: 065
     Dates: start: 20230404, end: 20230405
  43. CARFILZOMIB [Suspect]
     Active Substance: CARFILZOMIB
     Dosage: 0000 MG,D8
     Route: 065
     Dates: start: 20221123, end: 20221204
  44. CARFILZOMIB [Suspect]
     Active Substance: CARFILZOMIB
     Dosage: 00000 MG,D1
     Route: 065
     Dates: start: 20220815, end: 20220815
  45. CARFILZOMIB [Suspect]
     Active Substance: CARFILZOMIB
     Dosage: 00111 MG,D8,D9
     Route: 065
     Dates: start: 20221024, end: 20221025
  46. CARFILZOMIB [Suspect]
     Active Substance: CARFILZOMIB
     Dosage: 0000 MG,D15
     Route: 065
     Dates: start: 20230202, end: 20230213
  47. CARFILZOMIB [Suspect]
     Active Substance: CARFILZOMIB
     Dosage: 00111 MG,D1,D2
     Route: 065
     Dates: start: 20230228, end: 20230301
  48. CARFILZOMIB [Suspect]
     Active Substance: CARFILZOMIB
     Dosage: 0000 MG,D15,D16
     Route: 065
     Dates: start: 20220829, end: 20220911
  49. CARFILZOMIB [Suspect]
     Active Substance: CARFILZOMIB
     Dosage: 0000 MG,D15
     Route: 065
     Dates: start: 20221026, end: 20221106
  50. CARFILZOMIB [Suspect]
     Active Substance: CARFILZOMIB
     Dosage: 00040 MG,D2
     Route: 065
     Dates: start: 20220816, end: 20220816
  51. CARFILZOMIB [Suspect]
     Active Substance: CARFILZOMIB
     Dosage: 0000 MG,D1
     Route: 065
     Dates: start: 20230116, end: 20230116
  52. CARFILZOMIB [Suspect]
     Active Substance: CARFILZOMIB
     Dosage: 00000 MG,D8
     Route: 065
     Dates: start: 20230302, end: 20230313
  53. CARFILZOMIB [Suspect]
     Active Substance: CARFILZOMIB
     Dosage: 00111 UNK,D15,D16
     Route: 065
     Dates: start: 20230214, end: 20230215
  54. CARFILZOMIB [Suspect]
     Active Substance: CARFILZOMIB
     Dosage: 0000 MG, D15,D16
     Route: 065
     Dates: start: 20230321, end: 20230322
  55. CARFILZOMIB [Suspect]
     Active Substance: CARFILZOMIB
     Dosage: 00111 MG,D15,D16
     Route: 065
     Dates: start: 20221107, end: 20221108
  56. CARFILZOMIB [Suspect]
     Active Substance: CARFILZOMIB
     Dosage: UNK MG,D8,D9
     Route: 065
     Dates: start: 20220822, end: 20220823
  57. CARFILZOMIB [Suspect]
     Active Substance: CARFILZOMIB
     Dosage: 00111 MG,D1,D2
     Route: 065
     Dates: start: 20220912, end: 20220913
  58. CARFILZOMIB [Suspect]
     Active Substance: CARFILZOMIB
     Dosage: 00111 MG,D1,D2
     Route: 065
     Dates: start: 20221010, end: 20221011
  59. CARFILZOMIB [Suspect]
     Active Substance: CARFILZOMIB
     Dosage: 00111 MG,D8,D9
     Route: 065
     Dates: start: 20230314, end: 20230315
  60. CLEMASTINE [Concomitant]
     Active Substance: CLEMASTINE
     Indication: Prophylaxis
     Route: 065
     Dates: start: 20220815
  61. PANTOPRAZOLE SODIUM [Concomitant]
     Active Substance: PANTOPRAZOLE SODIUM
     Indication: Gastritis prophylaxis
     Dosage: UNK
     Dates: start: 20230215
  62. OMEPRAZOLE [Concomitant]
     Active Substance: OMEPRAZOLE
     Indication: Abdominal pain upper
     Dates: start: 20230103
  63. BEZAFIBRATE [Concomitant]
     Active Substance: BEZAFIBRATE
     Indication: Hyperlipidaemia
     Dates: start: 2016
  64. PLATELETS [Concomitant]
     Active Substance: HUMAN PLATELET, ALLOGENIC
     Indication: Thrombocytopenia
     Dosage: UNK
     Dates: start: 20220919
  65. ACYCLOVIR [Concomitant]
     Active Substance: ACYCLOVIR
     Indication: Infection prophylaxis
     Dosage: UNK
     Dates: start: 20201123
  66. ACETAMINOPHEN [Concomitant]
     Active Substance: ACETAMINOPHEN
     Indication: Prophylaxis
     Dates: start: 20220815
  67. COTRIM [Concomitant]
     Active Substance: SULFAMETHOXAZOLE\TRIMETHOPRIM
     Indication: Aortic aneurysm
     Dates: start: 20201123
  68. IBANDRONATE SODIUM [Concomitant]
     Active Substance: IBANDRONATE SODIUM
     Indication: Prophylaxis
     Dates: start: 20170630
  69. METFORMIN [Concomitant]
     Active Substance: METFORMIN HYDROCHLORIDE
     Indication: Diabetes mellitus
     Dates: start: 2015

REACTIONS (7)
  - Thrombocytopenia [Not Recovered/Not Resolved]
  - Respiratory tract infection [Recovered/Resolved]
  - Diarrhoea [Recovered/Resolved]
  - Respiratory tract infection [Recovered/Resolved]
  - Abdominal pain upper [Not Recovered/Not Resolved]
  - Infusion related reaction [Not Recovered/Not Resolved]
  - Anaemia [Not Recovered/Not Resolved]

NARRATIVE: CASE EVENT DATE: 20220929
